FAERS Safety Report 13959889 (Version 1)
Quarter: 2017Q3

REPORT INFORMATION
  Report Type: Spontaneous
  Country: US (occurrence: US)
  Receive Date: 20170912
  Receipt Date: 20170912
  Transmission Date: 20171128
  Serious: No
  Sender: FDA-Public Use
  Company Number: US-VERTEX PHARMACEUTICALS-2017-004901

PATIENT
  Age: 12 Year
  Sex: Male

DRUGS (20)
  1. GOLYTELY [Concomitant]
     Active Substance: POLYETHYLENE GLYCOL 3350\POTASSIUM CHLORIDE\SODIUM BICARBONATE\SODIUM CHLORIDE\SODIUM SULFATE ANHYDROUS
  2. LEVALBUTEROL. [Concomitant]
     Active Substance: LEVALBUTEROL
  3. LIQUIGEN [Concomitant]
     Active Substance: MEDIUM-CHAIN TRIGLYCERIDES
  4. PREVACID [Concomitant]
     Active Substance: LANSOPRAZOLE
  5. MINERAL OIL. [Concomitant]
     Active Substance: MINERAL OIL
  6. LACTOSE [Concomitant]
     Active Substance: LACTOSE
  7. AQUADEKS [Concomitant]
     Active Substance: MINERALS\VITAMINS
  8. PULMOZYME [Concomitant]
     Active Substance: DORNASE ALFA
  9. ZANTAC [Concomitant]
     Active Substance: RANITIDINE HYDROCHLORIDE
  10. NASONEX [Concomitant]
     Active Substance: MOMETASONE FUROATE
  11. ORKAMBI [Suspect]
     Active Substance: IVACAFTOR\LUMACAFTOR
     Indication: CYSTIC FIBROSIS
     Dosage: 2 TAB (200-125MG EACH), BID
     Route: 048
     Dates: start: 20170410
  12. FLAXSEED [Concomitant]
     Active Substance: FLAX SEED
  13. ZENPEP [Concomitant]
     Active Substance: PANCRELIPASE AMYLASE\PANCRELIPASE LIPASE\PANCRELIPASE PROTEASE
  14. MILK OF MAGNESIA [Concomitant]
     Active Substance: MAGNESIUM HYDROXIDE
  15. VITAMIN D3 [Concomitant]
     Active Substance: CHOLECALCIFEROL
  16. ZYRTEC [Concomitant]
     Active Substance: CETIRIZINE HYDROCHLORIDE
  17. SODIUM CHLORIDE. [Concomitant]
     Active Substance: SODIUM CHLORIDE
  18. TOBI [Concomitant]
     Active Substance: TOBRAMYCIN
  19. SENNA [Concomitant]
     Active Substance: SENNA LEAF\SENNOSIDES\SENNOSIDES A AND B
  20. CULTURELLE [Concomitant]
     Active Substance: LACTOBACILLUS RHAMNOSUS

REACTIONS (1)
  - Abdominal pain upper [Recovered/Resolved]

NARRATIVE: CASE EVENT DATE: 201704
